FAERS Safety Report 10501596 (Version 1)
Quarter: 2014Q4

REPORT INFORMATION
  Report Type: Spontaneous
  Country: US (occurrence: US)
  Receive Date: 20141007
  Receipt Date: 20141007
  Transmission Date: 20150528
  Serious: No
  Sender: FDA-Public Use
  Company Number: US-ELI_LILLY_AND_COMPANY-US201410001218

PATIENT
  Age: 47 Year
  Sex: Female

DRUGS (2)
  1. HUMULIN 70/30 [Suspect]
     Active Substance: INSULIN HUMAN
     Dosage: 30 U, EACH EVENING
     Route: 065
  2. HUMULIN 70/30 [Suspect]
     Active Substance: INSULIN HUMAN
     Indication: TYPE 1 DIABETES MELLITUS
     Dosage: 55 U, EACH MORNING
     Route: 065

REACTIONS (4)
  - Blood glucose increased [Unknown]
  - Malaise [Unknown]
  - Drug dose omission [Unknown]
  - Injury [Unknown]

NARRATIVE: CASE EVENT DATE: 20140919
